FAERS Safety Report 12910668 (Version 2)
Quarter: 2016Q4

REPORT INFORMATION
  Report Type: Spontaneous
  Country: US (occurrence: US)
  Receive Date: 20161104
  Receipt Date: 20161118
  Transmission Date: 20170207
  Serious: Yes (Hospitalization)
  Sender: FDA-Public Use
  Company Number: US-UNITED THERAPEUTICS-UNT-2016-015134

PATIENT
  Age: 35 Year
  Sex: Female
  Weight: 89.34 kg

DRUGS (1)
  1. REMODULIN [Suspect]
     Active Substance: TREPROSTINIL
     Indication: PULMONARY ARTERIAL HYPERTENSION
     Dosage: 0.060 ?G/KG, CONTINUING
     Route: 058
     Dates: start: 20141120

REACTIONS (4)
  - Neuralgia [Not Recovered/Not Resolved]
  - Status epilepticus [Unknown]
  - Dyspnoea [Recovered/Resolved]
  - Encephalitis autoimmune [Unknown]

NARRATIVE: CASE EVENT DATE: 2016
